FAERS Safety Report 8275623-2 (Version None)
Quarter: 2012Q2

REPORT INFORMATION
  Report Type: 
  Country: None (occurrence: None)
  Receive Date: 20120412
  Receipt Date: 20120403
  Transmission Date: 20120825
  Serious: No
  Sender: FDA-Public Use
  Company Number: US-BIOGENIDEC-2011BI010535

PATIENT
  Age: 76 Year
  Sex: Female

DRUGS (2)
  1. TYSABRI [Suspect]
     Indication: MULTIPLE SCLEROSIS
     Route: 042
     Dates: start: 20110131
  2. AVONEX [Concomitant]
     Indication: MULTIPLE SCLEROSIS
     Route: 030
     Dates: start: 19960101

REACTIONS (6)
  - FEELING ABNORMAL [None]
  - DIZZINESS [None]
  - MULTIPLE SCLEROSIS RELAPSE [None]
  - HYPERTENSION [None]
  - HEADACHE [None]
  - ASTHENIA [None]
